FAERS Safety Report 22059627 (Version 2)
Quarter: 2023Q2

REPORT INFORMATION
  Report Type: Spontaneous
  Country: US (occurrence: US)
  Receive Date: 20230303
  Receipt Date: 20230401
  Transmission Date: 20230721
  Serious: No
  Sender: FDA-Public Use
  Company Number: US-SANOFI-01513453

PATIENT
  Age: 79 Year
  Sex: Female

DRUGS (3)
  1. LANTUS SOLOSTAR [Suspect]
     Active Substance: INSULIN GLARGINE
     Indication: Diabetes mellitus
     Dosage: UNK
  2. INSULIN ASPART [Suspect]
     Active Substance: INSULIN ASPART
     Indication: Blood glucose increased
     Dosage: UNK
  3. OZEMPIC [Concomitant]
     Active Substance: SEMAGLUTIDE
     Dosage: UNK, QW

REACTIONS (2)
  - Blood glucose increased [Unknown]
  - Product use issue [Unknown]
